FAERS Safety Report 4763115-4 (Version None)
Quarter: 2005Q3

REPORT INFORMATION
  Report Type: 
  Country: None (occurrence: None)
  Receive Date: 20050826
  Receipt Date: 20050223
  Transmission Date: 20060218
  Serious: Yes (Death, Other)
  Sender: FDA-Public Use
  Company Number: USA-2004-0013519

PATIENT
  Age: 19 Year
  Sex: Male

DRUGS (9)
  1. OXYCONTIN [Suspect]
  2. VICODIN [Suspect]
  3. XANAX [Suspect]
  4. MARIJUANA(CANNABIS) [Suspect]
  5. COCAINE (COCAINE) [Suspect]
  6. HEROIN (DIAMORPHINE) [Suspect]
  7. ANTIHISTAMINES FOR SYSTEMIC USE [Suspect]
  8. AMPHETAMINE SULFATE TAB [Suspect]
  9. PHENYLPROPANOLAMINE HCL [Suspect]

REACTIONS (3)
  - ACCIDENTAL OVERDOSE [None]
  - MULTIPLE DRUG OVERDOSE [None]
  - POLYSUBSTANCE ABUSE [None]
